FAERS Safety Report 7913983-X (Version None)
Quarter: 2011Q4

REPORT INFORMATION
  Report Type: 
  Country: None (occurrence: None)
  Receive Date: 20111115
  Receipt Date: 20111102
  Transmission Date: 20120403
  Serious: Yes (Other)
  Sender: FDA-Public Use
  Company Number: US-BAYER-201016533NA

PATIENT
  Age: 17 Year
  Sex: Female

DRUGS (1)
  1. YAZ [Suspect]
     Dosage: UNK
     Route: 048
     Dates: start: 20080218, end: 20080701

REACTIONS (10)
  - GASTROOESOPHAGEAL REFLUX DISEASE [None]
  - PAIN [None]
  - ABDOMINAL PAIN [None]
  - DEPRESSION [None]
  - CHOLELITHIASIS [None]
  - ANXIETY [None]
  - EMOTIONAL DISTRESS [None]
  - CHOLECYSTITIS CHRONIC [None]
  - DYSPEPSIA [None]
  - IRRITABLE BOWEL SYNDROME [None]
